FAERS Safety Report 9052754 (Version 5)
Quarter: 2014Q2

REPORT INFORMATION
  Report Type: Report from Study
  Country: CA (occurrence: CA)
  Receive Date: 20130207
  Receipt Date: 20140415
  Transmission Date: 20141212
  Serious: Yes (Other)
  Sender: FDA-Public Use
  Company Number: CA-ROCHE-1187525

PATIENT
  Age: 57 Year
  Sex: Female
  Weight: 75 kg

DRUGS (10)
  1. ACTEMRA [Suspect]
     Indication: RHEUMATOID ARTHRITIS
     Route: 042
     Dates: start: 20110928
  2. ACTEMRA [Suspect]
     Route: 042
     Dates: start: 20130702
  3. ACTEMRA [Suspect]
     Route: 042
     Dates: start: 20140213
  4. ACTEMRA [Suspect]
     Route: 042
     Dates: start: 20140410
  5. METHOTREXATE [Concomitant]
  6. FOLIC ACID [Concomitant]
  7. ZOPICLONE [Concomitant]
  8. DILAUDID [Concomitant]
  9. VITAMIN E [Concomitant]
  10. VITAMIN C [Concomitant]

REACTIONS (11)
  - Neutropenia [Recovering/Resolving]
  - Leukopenia [Unknown]
  - Impaired healing [Unknown]
  - Rectal haemorrhage [Unknown]
  - Hepatic enzyme increased [Unknown]
  - Muscle spasms [Unknown]
  - Weight increased [Unknown]
  - Malaise [Not Recovered/Not Resolved]
  - Nausea [Unknown]
  - Insomnia [Unknown]
  - Infusion related reaction [Unknown]
